FAERS Safety Report 9581011 (Version 1)
Quarter: 2013Q4

REPORT INFORMATION
  Report Type: Spontaneous
  Country: GB (occurrence: GB)
  Receive Date: 20131002
  Receipt Date: 20131002
  Transmission Date: 20140711
  Serious: Yes (Hospitalization)
  Sender: FDA-Public Use
  Company Number: GB-ROCHE-1283490

PATIENT
  Age: 58 Year
  Sex: Male

DRUGS (13)
  1. COPEGUS [Suspect]
     Indication: HEPATITIS C
     Dosage: DOSE REDUCED
     Route: 048
     Dates: start: 20130503, end: 20130605
  2. COPEGUS [Suspect]
     Dosage: DOSE REDUCED
     Route: 048
     Dates: start: 20130605, end: 20130610
  3. COPEGUS [Suspect]
     Dosage: DOSE REDUCED
     Route: 048
     Dates: start: 20130610, end: 20130617
  4. COPEGUS [Suspect]
     Dosage: DOSE REDUCED
     Route: 048
     Dates: start: 20130617, end: 20130625
  5. COPEGUS [Suspect]
     Dosage: DOSE REDUCED
     Route: 048
     Dates: start: 20130719, end: 20130830
  6. INCIVO [Suspect]
     Indication: HEPATITIS C
     Route: 048
     Dates: start: 20130531, end: 20130805
  7. PEGINTERFERON ALFA-2B [Suspect]
     Indication: HEPATITIS C
     Route: 048
     Dates: start: 20130419, end: 20130823
  8. TRAMADOL HYDROCHLORIDE [Suspect]
     Indication: PAIN
     Route: 048
     Dates: start: 20130805, end: 20130827
  9. TRAMADOL HYDROCHLORIDE [Suspect]
     Indication: TOOTH ABSCESS
  10. FLUOXETINE [Concomitant]
     Indication: DEPRESSION
     Route: 048
     Dates: start: 20130417
  11. FUROSEMIDE [Concomitant]
     Indication: ASCITES
     Route: 048
     Dates: start: 20120102
  12. PARACETAMOL [Concomitant]
     Indication: ANALGESIC THERAPY
     Route: 048
  13. PROPRANOLOL [Concomitant]
     Indication: ASCITES
     Route: 048
     Dates: start: 20120102

REACTIONS (9)
  - Anaemia [Unknown]
  - Oedema peripheral [Unknown]
  - Memory impairment [Unknown]
  - Hallucination [Recovered/Resolved]
  - Hypokalaemia [Unknown]
  - Malnutrition [Unknown]
  - Nausea [Unknown]
  - Psychotic disorder [Recovered/Resolved]
  - Thrombocytopenia [Unknown]
